FAERS Safety Report 19407790 (Version 2)
Quarter: 2021Q3

REPORT INFORMATION
  Report Type: Report from Study
  Country: AR (occurrence: AR)
  Receive Date: 20210612
  Receipt Date: 20210811
  Transmission Date: 20211014
  Serious: Yes (Death, Hospitalization, Other)
  Sender: FDA-Public Use
  Company Number: AR-TAKEDA-2021TUS034496

PATIENT
  Age: 54 Year
  Sex: Male

DRUGS (1)
  1. PONATINIB [Suspect]
     Active Substance: PONATINIB
     Indication: CHRONIC MYELOID LEUKAEMIA
     Dosage: 45 MILLIGRAM
     Route: 048
     Dates: start: 20200410, end: 20210426

REACTIONS (6)
  - Blast cell crisis [Fatal]
  - Febrile neutropenia [Fatal]
  - COVID-19 [Unknown]
  - Throat tightness [Unknown]
  - Infection [Fatal]
  - Swelling face [Unknown]

NARRATIVE: CASE EVENT DATE: 20210426
